FAERS Safety Report 7377376-9 (Version None)
Quarter: 2011Q1

REPORT INFORMATION
  Report Type: 
  Country: None (occurrence: None)
  Receive Date: 20110328
  Receipt Date: 20110325
  Transmission Date: 20110831
  Serious: No
  Sender: FDA-Public Use
  Company Number: US-PFIZER INC-2011067413

PATIENT
  Sex: Female
  Weight: 55.329 kg

DRUGS (4)
  1. TRAZODONE [Concomitant]
     Indication: SLEEP DISORDER
     Dosage: UNK
  2. ZOLOFT [Suspect]
     Indication: DEPRESSION
     Dosage: 200 MG, DAILY
     Route: 048
     Dates: start: 20110103
  3. ZOLOFT [Suspect]
     Indication: ANXIETY
  4. SUBUTEX [Concomitant]
     Indication: DRUG DEPENDENCE
     Dosage: UNK

REACTIONS (1)
  - DRUG SCREEN POSITIVE [None]
